FAERS Safety Report 24587091 (Version 1)
Quarter: 2024Q4

REPORT INFORMATION
  Report Type: Spontaneous
  Country: US (occurrence: None)
  Receive Date: 20241107
  Receipt Date: 20241107
  Transmission Date: 20250114
  Serious: No
  Sender: UNICHEM
  Company Number: US-ARIS GLOBAL-UCM202408-000993

PATIENT
  Age: 50 Year

DRUGS (2)
  1. LAMOTRIGINE [Suspect]
     Active Substance: LAMOTRIGINE
     Indication: Product used for unknown indication
     Dosage: TWO TABLETS OF LAMOTRIGINE 25 MG TO THEM, AS THE PATIENT REQUIRES A 50 MG DOSE.
     Route: 048
  2. LAMOTRIGINE [Suspect]
     Active Substance: LAMOTRIGINE
     Dosage: TWO 50 MG TABLETS
     Route: 048

REACTIONS (1)
  - Wrong technique in product usage process [Unknown]
